FAERS Safety Report 21038134 (Version 1)
Quarter: 2022Q3

REPORT INFORMATION
  Report Type: Report from Study
  Country: AU (occurrence: AU)
  Receive Date: 20220704
  Receipt Date: 20220704
  Transmission Date: 20221027
  Serious: Yes (Hospitalization)
  Sender: FDA-Public Use
  Company Number: AU-JNJFOC-20220529005

PATIENT
  Sex: Female
  Weight: 64.95 kg

DRUGS (1)
  1. DARZALEX [Suspect]
     Active Substance: DARATUMUMAB
     Indication: Plasma cell myeloma
     Dosage: DATE OF LAST DOSE: 02-MAY-2022?DATE OF NEXT DOSE: 16-MAY-2022
     Route: 058

REACTIONS (2)
  - COVID-19 [Unknown]
  - Infection [Unknown]
